FAERS Safety Report 12450330 (Version 3)
Quarter: 2017Q2

REPORT INFORMATION
  Report Type: Spontaneous
  Country: US (occurrence: US)
  Receive Date: 20160609
  Receipt Date: 20170403
  Transmission Date: 20170830
  Serious: No
  Sender: FDA-Public Use
  Company Number: US-PFIZER INC-2016214292

PATIENT
  Age: 86 Year
  Sex: Female
  Weight: 74.8 kg

DRUGS (48)
  1. RESTASIS [Concomitant]
     Active Substance: CYCLOSPORINE
     Dosage: 1 DF, TWICE A DAY (PLACE 1 DROP INTO THE RIGHT EYE 2 TIMES A DAY)
     Route: 047
  2. COENZYME Q10 [Concomitant]
     Active Substance: UBIDECARENONE
     Dosage: 200 MG, ONCE A DAY (TAKE WITH CHOLESTEROL MEDICATION)
     Route: 048
  3. CENTRUM SILVER [Concomitant]
     Active Substance: MINERALS\VITAMINS
     Dosage: 1 DF, ONCE A DAY (TAKE 1 TABLET BY MOUTH 1 TIME PER DAY)
     Route: 048
  4. AMBIEN [Concomitant]
     Active Substance: ZOLPIDEM TARTRATE
     Indication: INSOMNIA
     Dosage: 5 MG, AS NEEDED (AT BEDTIME AS NEEDED)
     Route: 048
     Dates: start: 20160127
  5. PROVENTIL [Concomitant]
     Active Substance: ALBUTEROL
     Indication: DYSPNOEA
     Dosage: UNK, AS NEEDED (INHALE 2 PUFFS ORALLY EVERY 4 TO 6 HOURS AS NEEDED)
     Route: 048
     Dates: start: 20150415
  6. LUTEIN [Concomitant]
     Active Substance: LUTEIN
     Dosage: 10 MG, ONCE A DAY
     Route: 048
  7. PROTONIX [Concomitant]
     Active Substance: PANTOPRAZOLE SODIUM
     Dosage: 40 MG, ONCE A DAY
     Route: 048
  8. MELATONIN [Concomitant]
     Active Substance: MELATONIN
     Dosage: 10 MG, ONCE A DAY (TAKE 10MG BY MOUTH EVERY NIGHT AT BEDTIME)
     Route: 048
  9. TESALON [Concomitant]
     Indication: COUGH
     Dosage: 100 MG, THREE TIMES A DAY
     Route: 048
  10. JOINTFLEX [Concomitant]
     Active Substance: CAMPHOR (SYNTHETIC)
     Dosage: 1 DF, TWICE A DAY [500 MG GLUCOSAMINE]\[400 MG CHONDROITIN]
     Route: 048
  11. XALKORI [Suspect]
     Active Substance: CRIZOTINIB
     Dosage: 250 MG, TWICE A DAY
     Route: 048
     Dates: start: 20160411
  12. STOOL SOFTENER (DOCUSATE) [Concomitant]
     Active Substance: DOCUSATE
     Indication: CONSTIPATION
     Dosage: 1 DF, AS NEEDED
     Route: 048
  13. NORVASC [Concomitant]
     Active Substance: AMLODIPINE BESYLATE
     Dosage: 5 MG, 1X/DAY
     Route: 048
  14. ASPIRIN 81 [Concomitant]
     Active Substance: ASPIRIN
     Dosage: 81 MG, ONCE A DAY
     Route: 048
     Dates: start: 20160224
  15. TYLENOL [Concomitant]
     Active Substance: ACETAMINOPHEN
     Dosage: 500 MG, FOUR TIMES A DAY (1 TABLET EVERY 6 HOURS AS NEEDED )
  16. PROAIR HFA [Concomitant]
     Active Substance: ALBUTEROL SULFATE
     Indication: WHEEZING
  17. VENTOLIN [Concomitant]
     Active Substance: ALBUTEROL SULFATE
     Indication: DYSPNOEA
     Dosage: UNK, AS NEEDED (INHALE 2 PUFFS ORALLY EVERY 4 TO 6 HOURS AS NEEDED)
     Route: 048
     Dates: start: 20150415
  18. KLOR-CON M10 [Concomitant]
     Active Substance: POTASSIUM CHLORIDE
     Dosage: 10 MEQ, ONCE A DAY
     Route: 048
     Dates: start: 20150406
  19. OSCAL D [Concomitant]
     Active Substance: CALCIUM CARBONATE\CHOLECALCIFEROL
     Dosage: 1 DF, TWICE A DAY [500MG CALCIUM CARBONATE]\ [200 UNIT ERGOCALCIFEROL )
     Route: 048
     Dates: start: 20150406
  20. PRILOSEC [Concomitant]
     Active Substance: OMEPRAZOLE MAGNESIUM
     Dosage: 20 MG, ALTERNATE DAY
     Route: 048
     Dates: start: 20160204
  21. PROAIR HFA [Concomitant]
     Active Substance: ALBUTEROL SULFATE
     Indication: DYSPNOEA
     Dosage: UNK, AS NEEDED (INHALE 2 PUFFS ORALLY EVERY 4 TO 6 HOURS AS NEEDED)
     Route: 048
     Dates: start: 20150415
  22. TOBRADEX [Concomitant]
     Active Substance: DEXAMETHASONE\TOBRAMYCIN
     Indication: EYE IRRITATION
     Dosage: UNK, AS NEEDED (APPLY TO LID AND LASHES OS AT BEDTIME AS NEEDED)[TOBRAMYCIN0.3%]\[DEXAMETHASONE 0.1}
  23. LASIX [Concomitant]
     Active Substance: FUROSEMIDE
     Dosage: 10 MG, ALTERNATE DAY (TAKE 0.5 TABLETS (10MG TOTAL) BY MOUTH EVERY OTHER DAY)
  24. FLOVENT HFA [Concomitant]
     Active Substance: FLUTICASONE PROPIONATE
     Dosage: 220 UG, TWICE A DAY (110 MCG/PUFF INHALER, INHALE 2 PUFFS 2 TIMES A DAY)
     Route: 048
     Dates: start: 20160308
  25. NORVASC [Concomitant]
     Active Substance: AMLODIPINE BESYLATE
     Dosage: 10 MG, ONCE A DAY (TAKEN IN THE EVENING)
     Route: 048
     Dates: start: 20160215
  26. TYLENOL [Concomitant]
     Active Substance: ACETAMINOPHEN
     Indication: PAIN
     Dosage: 500 MG, AS NEEDED (TAKE 500-1,000 MG EVERY 4 TO 6 HOURS AS NEEDED)
     Route: 048
  27. VITAMIN D3 [Concomitant]
     Active Substance: CHOLECALCIFEROL
     Dosage: 1000 IU, ONCE A DAY
     Route: 048
  28. VENTOLIN [Concomitant]
     Active Substance: ALBUTEROL SULFATE
     Indication: WHEEZING
  29. CELEXA [Concomitant]
     Active Substance: CITALOPRAM HYDROBROMIDE
     Indication: AFFECTIVE DISORDER
     Dosage: 20 MG, ONCE A DAY
     Route: 048
     Dates: start: 20150406
  30. CRESTOR [Concomitant]
     Active Substance: ROSUVASTATIN CALCIUM
     Dosage: 10 MG, ONCE A DAY (TAKE 1 TABLET BY MOUTH EVERY NIGHT AT BEDTIME)
     Route: 048
     Dates: start: 20150406
  31. SYNALAR [Concomitant]
     Active Substance: FLUOCINOLONE ACETONIDE
     Indication: RASH
     Dosage: UNK, AS NEEDED (0.01 % SOLUTION,APPLY TO AFFECTED AREA 2 TIMES A DAY AS NEEDED)
     Dates: start: 20150406
  32. PERI-COLACE [Concomitant]
     Active Substance: CASANTHRANOL\DOCUSATE SODIUM
     Dosage: 2 DF, TWICE A DAY [?50 MG DOCUSATE SODIUM]\[?8.6 MG  CASANTHRANOL ]
     Route: 048
  33. KLOR-CON [Concomitant]
     Active Substance: POTASSIUM CHLORIDE
     Dosage: 10 MEQ, ONCE A DAY
     Route: 048
  34. XALKORI [Suspect]
     Active Substance: CRIZOTINIB
     Indication: NON-SMALL CELL LUNG CANCER
     Dosage: 250 MG, ONCE A DAY
     Route: 048
     Dates: start: 20160315, end: 20160505
  35. PROVENTIL [Concomitant]
     Active Substance: ALBUTEROL
     Indication: WHEEZING
  36. CLARITIN [Concomitant]
     Active Substance: LORATADINE
     Indication: HYPERSENSITIVITY
     Dosage: 10 MG, AS NEEDED (1 TIME A DAY AS NEEDED)
     Route: 048
  37. BIOTIN/CALCIUM PHOSPHATE DIBASIC [Concomitant]
     Dosage: 5 MG, ONCE A DAY
     Route: 048
  38. JOINT FOOD [Concomitant]
     Dosage: 1 DF, TWICE A DAY (500 MG OF GLUCOSAMINE , 400 MG OF CHONDROITIN SULFATE)
     Route: 048
  39. TYLENOL PM [Concomitant]
     Active Substance: ACETAMINOPHEN\DIPHENHYDRAMINE
     Dosage: 1 DF, ONCE A DAY (EVERY NIGHT AT BEDTIME)
     Route: 048
  40. BENADRYL [Concomitant]
     Active Substance: DIPHENHYDRAMINE HYDROCHLORIDE
     Dosage: 25 MG, ONCE A DAY (1 TIME A DAY IN THE MORNING)
     Route: 048
  41. COUMADIN [Concomitant]
     Active Substance: WARFARIN SODIUM
     Dosage: UNK (2.5-5 MG DAILY DOSE RANGE)
  42. ALBUTEROL HFA [Concomitant]
     Active Substance: ALBUTEROL SULFATE
     Indication: DYSPNOEA
     Dosage: UNK UNK, AS NEEDED (108 (90 BASE) MCG/ACT INHALER INHALE 2 PUFFS ORALLY EVERY 4 TO 6 HOURS)
     Route: 055
  43. ALBUTEROL HFA [Concomitant]
     Active Substance: ALBUTEROL SULFATE
     Indication: WHEEZING
  44. XALKORI [Suspect]
     Active Substance: CRIZOTINIB
     Dosage: 200 MG, TWICE A DAY
     Route: 048
  45. DYAZIDE [Concomitant]
     Active Substance: HYDROCHLOROTHIAZIDE\TRIAMTERENE
     Dosage: 1 DF, 1X/DAY (37.5 MG TRIAMTERENE/25 MG HYDROCHLOROTHIAZIDE)
     Route: 048
     Dates: start: 20150406
  46. CARAFATE [Concomitant]
     Active Substance: SUCRALFATE
     Dosage: UNK UNK, FOUR TIMES DAY (TAKE 10 ML (1 G) BY MOUTH 4 TIMES A DAY BEFORE MEALS AND AT BEDTIME)
     Route: 048
  47. BREO ELLIPTA [Concomitant]
     Active Substance: FLUTICASONE FUROATE\VILANTEROL TRIFENATATE
     Dosage: UNK, ONCE A DAY [200 MCG FLUTICASONE]\[25MCG VILANTEROL] INHALE 1 PUFF ORALLY 1 TIME PER DAY
     Route: 055
  48. VALTREX [Concomitant]
     Active Substance: VALACYCLOVIR HYDROCHLORIDE
     Indication: ORAL HERPES
     Dosage: 1000 MG, AS NEEDED (2 TABLETS BY MOUTH AT ONSET OF COLD SORE, REPEAT IN 12 HOURS)
     Route: 048

REACTIONS (3)
  - Dyspnoea [Unknown]
  - Cough [Unknown]
  - Diarrhoea [Unknown]
